FAERS Safety Report 22117967 (Version 1)
Quarter: 2023Q1

REPORT INFORMATION
  Report Type: Spontaneous
  Country: US (occurrence: None)
  Receive Date: 20230321
  Receipt Date: 20230321
  Transmission Date: 20230417
  Serious: No
  Sender: FDA-Public Use
  Company Number: US-ROCHE-3240348

PATIENT
  Age: 79 Year
  Sex: Male

DRUGS (3)
  1. VABYSMO [Suspect]
     Active Substance: FARICIMAB-SVOA
     Indication: Neovascular age-related macular degeneration
     Route: 050
     Dates: start: 202205
  2. LUCENTIS [Suspect]
     Active Substance: RANIBIZUMAB
     Indication: Neovascular age-related macular degeneration
     Route: 050
     Dates: start: 2018
  3. MESO ZEAXANTHIN [Concomitant]
     Indication: Neovascular age-related macular degeneration
     Route: 048

REACTIONS (6)
  - Ill-defined disorder [Unknown]
  - Lacrimation increased [Unknown]
  - Vision blurred [Unknown]
  - Eye discharge [Unknown]
  - Ill-defined disorder [Unknown]
  - Memory impairment [Unknown]
